FAERS Safety Report 8398794-6 (Version None)
Quarter: 2012Q2

REPORT INFORMATION
  Report Type: 
  Country: None (occurrence: None)
  Receive Date: 20120524
  Receipt Date: 20120509
  Transmission Date: 20120825
  Serious: Yes (Other)
  Sender: FDA-Public Use
  Company Number: AUR-APL-2012-02331

PATIENT
  Age: 45 Year
  Sex: Female

DRUGS (1)
  1. AMOXICILLIN [Suspect]
     Indication: PRODUCT USED FOR UNKNOWN INDICATION
     Dosage: (2 DOSAGE FORMS, 1 D), ORAL
     Route: 048
     Dates: start: 20120419, end: 20120421

REACTIONS (1)
  - ANGIOEDEMA [None]
